FAERS Safety Report 12169862 (Version 1)
Quarter: 2016Q1

REPORT INFORMATION
  Report Type: Report from Study
  Country: US (occurrence: US)
  Receive Date: 20160310
  Receipt Date: 20160310
  Transmission Date: 20160526
  Serious: No
  Sender: FDA-Public Use
  Company Number: PHEH2016US005773

PATIENT
  Age: 26 Year
  Sex: Female
  Weight: 82.99 kg

DRUGS (1)
  1. GILENYA [Suspect]
     Active Substance: FINGOLIMOD HYDROCHLORIDE
     Indication: MULTIPLE SCLEROSIS
     Dosage: 0.5 MG, QD
     Route: 048
     Dates: start: 20150627

REACTIONS (5)
  - Malaise [Recovering/Resolving]
  - Insomnia [Recovering/Resolving]
  - Bronchitis [Recovering/Resolving]
  - Eating disorder [Recovering/Resolving]
  - Cough [Recovering/Resolving]

NARRATIVE: CASE EVENT DATE: 20160227
